FAERS Safety Report 18762508 (Version 1)
Quarter: 2021Q1

REPORT INFORMATION
  Report Type: Spontaneous
  Country: CN (occurrence: CN)
  Receive Date: 20210120
  Receipt Date: 20210120
  Transmission Date: 20210419
  Serious: Yes (Hospitalization)
  Sender: FDA-Public Use
  Company Number: CN-CHEPLA-C20210241

PATIENT
  Age: 39 Year
  Sex: Female
  Weight: 55 kg

DRUGS (11)
  1. METHYCOBAL [Suspect]
     Active Substance: METHYLCOBALAMIN
     Indication: POST HERPETIC NEURALGIA
     Dosage: 1.5 MG
     Dates: start: 20201121, end: 20201125
  2. MING ZHU XIN [Suspect]
     Active Substance: VALACYCLOVIR HYDROCHLORIDE
     Indication: POST HERPETIC NEURALGIA
     Dosage: 300 ML, 2X/DAY (BEFORE MEAL)
     Dates: start: 20201121, end: 20201124
  3. MECOBALAMIN [Suspect]
     Active Substance: METHYLCOBALAMIN
     Indication: POST HERPETIC NEURALGIA
     Dosage: 1.5 MG, DAILY (0.5 MG TID)
     Dates: start: 20201121, end: 20201124
  4. SODIUM CHLORIDE. [Suspect]
     Active Substance: SODIUM CHLORIDE
     Indication: POST HERPETIC NEURALGIA
     Dosage: 250 ML, 1X/DAY
     Dates: start: 20201121, end: 20201124
  5. LYRICA [Suspect]
     Active Substance: PREGABALIN
     Indication: POST HERPETIC NEURALGIA
     Dosage: 75 MG, 3X/DAY
     Dates: start: 20201121, end: 20201124
  6. METHYCOBAL [Suspect]
     Active Substance: METHYLCOBALAMIN
     Indication: POST HERPETIC NEURALGIA
     Dosage: 0.5 MG, DAILY
     Dates: start: 20201121, end: 20201124
  7. METHYCOBAL [Suspect]
     Active Substance: METHYLCOBALAMIN
     Indication: POST HERPETIC NEURALGIA
     Dosage: 1 ML
     Dates: start: 20201124, end: 20201124
  8. GANCICLOVIR. [Suspect]
     Active Substance: GANCICLOVIR
     Indication: POST HERPETIC NEURALGIA
     Dosage: 0.25 G, 1X/DAY (FREEZE?DRIED POWDER)
     Dates: start: 20201121, end: 20201124
  9. JAFERON [Suspect]
     Active Substance: INTERFERON ALFA-2B
     Indication: POST HERPETIC NEURALGIA
     Dosage: 20 ML, 4X/DAY{/TEXT}
     Dates: start: 20201121, end: 20201124
  10. METHYCOBAL [Suspect]
     Active Substance: METHYLCOBALAMIN
     Indication: POST HERPETIC NEURALGIA
     Dosage: 1 ML
     Dates: start: 20201121, end: 20201123
  11. METHYCOBAL [Suspect]
     Active Substance: METHYLCOBALAMIN
     Indication: POST HERPETIC NEURALGIA
     Dosage: 1 ML
     Dates: start: 20201125, end: 20201127

REACTIONS (4)
  - Pallor [Recovering/Resolving]
  - Product use in unapproved indication [Unknown]
  - Herpes zoster [Recovering/Resolving]
  - Condition aggravated [Recovering/Resolving]

NARRATIVE: CASE EVENT DATE: 202011
